FAERS Safety Report 4287029-1 (Version None)
Quarter: 2004Q1

REPORT INFORMATION
  Report Type: 
  Country: None (occurrence: None)
  Receive Date: 20040205
  Receipt Date: 20031224
  Transmission Date: 20041129
  Serious: Yes (Hospitalization)
  Sender: FDA-Public Use
  Company Number: A03200303064

PATIENT
  Age: 74 Year
  Sex: Male
  Weight: 99.7913 kg

DRUGS (6)
  1. PLAVIX [Suspect]
     Indication: CARDIAC ARREST
     Dosage: 75 MG QD - ORAL
     Route: 048
     Dates: start: 20030501, end: 20031210
  2. PLAVIX [Suspect]
     Indication: MYOCARDIAL INFARCTION
     Dosage: 75 MG QD - ORAL
     Route: 048
     Dates: start: 20030501, end: 20031210
  3. SIMVASTATIN [Concomitant]
  4. FUROSEMIDE [Concomitant]
  5. ACETYLSALICYLIC ACID SRT [Concomitant]
  6. CARVEDILOL [Concomitant]

REACTIONS (4)
  - CELLULITIS [None]
  - HAEMORRHAGE [None]
  - HAEMORRHAGE SUBCUTANEOUS [None]
  - JOINT INJURY [None]
